FAERS Safety Report 7399974-9 (Version None)
Quarter: 2011Q2

REPORT INFORMATION
  Report Type: 
  Country: None (occurrence: None)
  Receive Date: 20110407
  Receipt Date: 20110323
  Transmission Date: 20111010
  Serious: Yes (Hospitalization, Other)
  Sender: FDA-Public Use
  Company Number: PHHY2011FR17532

PATIENT
  Sex: Female

DRUGS (8)
  1. LIPANTHYL [Concomitant]
  2. CELECTOL [Concomitant]
  3. HEPARIN [Concomitant]
  4. ASPEGIC 325 [Concomitant]
  5. DAFLON [Concomitant]
  6. ALDACTAZINE [Concomitant]
  7. ANTI-VITAMIN K [Concomitant]
  8. ACLASTA [Suspect]
     Indication: OSTEOPOROSIS POSTMENOPAUSAL
     Dosage: 5 MG
     Route: 042
     Dates: start: 20100210

REACTIONS (21)
  - PULMONARY EMBOLISM [None]
  - DIVERTICULUM [None]
  - RALES [None]
  - DIVERTICULUM INTESTINAL [None]
  - PHLEBITIS [None]
  - HYPOKINESIA [None]
  - ATRIAL FIBRILLATION [None]
  - ASPARTATE AMINOTRANSFERASE INCREASED [None]
  - PULMONARY VASCULAR RESISTANCE ABNORMALITY [None]
  - FIBRIN D DIMER INCREASED [None]
  - BRAIN NATRIURETIC PEPTIDE INCREASED [None]
  - VARICOSE VEIN [None]
  - PLATELET COUNT DECREASED [None]
  - TROPONIN T INCREASED [None]
  - DEEP VEIN THROMBOSIS [None]
  - DYSPNOEA [None]
  - RIGHT VENTRICULAR DYSFUNCTION [None]
  - HYPERCREATINAEMIA [None]
  - BLOOD CREATINE PHOSPHOKINASE MB INCREASED [None]
  - MYOGLOBIN BLOOD INCREASED [None]
  - BLOOD UREA INCREASED [None]
